FAERS Safety Report 4844144-9 (Version None)
Quarter: 2005Q4

REPORT INFORMATION
  Report Type: 
  Country: None (occurrence: None)
  Receive Date: 20051202
  Receipt Date: 20051123
  Transmission Date: 20060501
  Serious: Yes (Hospitalization)
  Sender: FDA-Public Use
  Company Number: BE-SANOFI-SYNTHELABO-A01200508253

PATIENT
  Sex: Male

DRUGS (9)
  1. ELOXATIN [Suspect]
     Indication: COLON CANCER
     Dosage: DOSE NOT PROVIDED
     Route: 041
     Dates: start: 20050928, end: 20050928
  2. ELOXATIN [Suspect]
     Dosage: DOSE NOT PROVIDED
     Route: 041
     Dates: start: 20051012, end: 20051012
  3. ELOXATIN [Suspect]
     Dosage: DOSE NOT PROVIDED
     Route: 041
     Dates: start: 20051026, end: 20051026
  4. ELOXATIN [Suspect]
     Dosage: DOSE NOT PROVIDED
     Route: 041
     Dates: start: 20051114, end: 20051114
  5. ALLOPURINOL [Concomitant]
  6. FOLAVIT [Concomitant]
  7. NOVABAN [Concomitant]
  8. LITICAN [Concomitant]
  9. MEDROL [Concomitant]
     Dates: start: 20051115

REACTIONS (16)
  - ALPHA HAEMOLYTIC STREPTOCOCCAL INFECTION [None]
  - CHILLS [None]
  - CONDITION AGGRAVATED [None]
  - CULTURE THROAT POSITIVE [None]
  - GENERAL PHYSICAL HEALTH DETERIORATION [None]
  - HAEMOLYTIC ANAEMIA [None]
  - HYPERSENSITIVITY [None]
  - JAUNDICE [None]
  - LYMPHOCYTE PERCENTAGE DECREASED [None]
  - NAUSEA [None]
  - NEUTROPHIL PERCENTAGE INCREASED [None]
  - PARAESTHESIA [None]
  - PYREXIA [None]
  - SEDATION [None]
  - VOMITING [None]
  - WHITE BLOOD CELL COUNT INCREASED [None]
